FAERS Safety Report 8551748-9 (Version None)
Quarter: 2012Q3

REPORT INFORMATION
  Report Type: 
  Country: None (occurrence: None)
  Receive Date: 20120730
  Receipt Date: 20120725
  Transmission Date: 20120928
  Serious: Yes (Death)
  Sender: FDA-Public Use
  Company Number: US-CELGENEUS-163-21880-12053062

PATIENT
  Sex: Male

DRUGS (24)
  1. REVLIMID [Suspect]
     Dosage: 18.75 MILLIGRAM
     Route: 048
     Dates: start: 20120401, end: 20120511
  2. FLOMAX [Concomitant]
     Route: 065
  3. REVLIMID [Suspect]
     Indication: MULTIPLE MYELOMA
     Dosage: 25 MILLIGRAM
     Route: 048
     Dates: start: 20110516, end: 20110101
  4. ALDACTONE [Concomitant]
     Dosage: 25 MILLIGRAM
     Route: 048
  5. ASPIRIN [Concomitant]
     Dosage: 325 MILLIGRAM
     Route: 065
  6. REGLAN [Concomitant]
     Route: 065
  7. ZOMETA [Concomitant]
     Route: 065
  8. DEXAMETHASONE [Concomitant]
     Dosage: 20 MILLIGRAM
     Route: 065
  9. CYMBALTA [Concomitant]
     Dosage: 30 MILLIGRAM
     Route: 065
  10. LEVOTHYROXINE SODIUM [Concomitant]
     Dosage: .125 MILLIGRAM
     Route: 065
  11. CALCIUM CARBONATE [Concomitant]
     Route: 065
  12. MEGACE [Concomitant]
     Route: 065
  13. HYDRATION [Concomitant]
     Indication: VOMITING
     Dosage: 50 MILLILITER
     Route: 041
  14. MULTI-VITAMINS [Concomitant]
     Route: 065
  15. LASIX [Concomitant]
     Dosage: 20 MILLIGRAM
     Route: 048
  16. TESTOSTERONE [Concomitant]
     Route: 065
  17. CYMBALTA [Concomitant]
     Dosage: 60 MILLIGRAM
     Route: 065
  18. TRAMADOL HYDROCHLORIDE [Concomitant]
     Dosage: 100 MILLIGRAM
     Route: 065
  19. HYDRATION [Concomitant]
     Route: 041
  20. DIGOXIN [Concomitant]
     Dosage: 125 MICROGRAM
     Route: 065
  21. MORPHINE SULFATE [Concomitant]
     Indication: BREAKTHROUGH PAIN
     Route: 065
  22. PROTONIX [Concomitant]
     Route: 065
  23. MILK OF MAGNESIA TAB [Concomitant]
     Route: 065
  24. MIRALAX [Concomitant]
     Route: 065

REACTIONS (1)
  - MULTIPLE MYELOMA [None]
